FAERS Safety Report 13614156 (Version 6)
Quarter: 2017Q2

REPORT INFORMATION
  Report Type: Spontaneous
  Country: BE (occurrence: BE)
  Receive Date: 20170606
  Receipt Date: 20170628
  Transmission Date: 20170830
  Serious: Yes (Death, Other)
  Sender: FDA-Public Use
  Company Number: PHHY2017BE082338

PATIENT
  Age: 45 Year
  Sex: Male

DRUGS (2)
  1. CICLOSPORIN [Suspect]
     Active Substance: CYCLOSPORINE
     Indication: HISTIOCYTOSIS HAEMATOPHAGIC
     Route: 065
  2. ETOPOSIDE. [Suspect]
     Active Substance: ETOPOSIDE
     Indication: HISTIOCYTOSIS HAEMATOPHAGIC
     Route: 065

REACTIONS (7)
  - Neutropenia [Unknown]
  - Staphylococcal infection [Unknown]
  - Product use in unapproved indication [Unknown]
  - Thrombocytopenia [Fatal]
  - Bronchopulmonary aspergillosis [Unknown]
  - Central nervous system haemorrhage [Fatal]
  - Therapeutic response decreased [Unknown]
